FAERS Safety Report 19255624 (Version 1)
Quarter: 2021Q2

REPORT INFORMATION
  Report Type: Report from Study
  Country: IN (occurrence: IN)
  Receive Date: 20210513
  Receipt Date: 20210513
  Transmission Date: 20210717
  Serious: Yes (Death)
  Sender: FDA-Public Use
  Company Number: IN-INCYTE CORPORATION-2021IN004029

PATIENT

DRUGS (2)
  1. JAKAVI [Suspect]
     Active Substance: RUXOLITINIB
     Indication: PRIMARY MYELOFIBROSIS
     Dosage: 5 MG, BID (5 MG IN MORNING AND 10 MG IN EVENING)
     Route: 048
     Dates: start: 20210107
  2. JAKAVI [Suspect]
     Active Substance: RUXOLITINIB
     Dosage: 5 MG, BID
     Route: 065

REACTIONS (2)
  - Product use issue [Unknown]
  - Coronavirus infection [Fatal]

NARRATIVE: CASE EVENT DATE: 20210412
